FAERS Safety Report 9233072 (Version 1)
Quarter: 2013Q1

REPORT INFORMATION
  Report Type: Spontaneous
  Country: US (occurrence: None)
  Receive Date: 20121031
  Receipt Date: 20121031
  Transmission Date: 20140127
  Serious: No
  Sender: FDA-Public Use
  Company Number: PHEH2012US012296

PATIENT
  Age: 48 Year
  Sex: Male

DRUGS (9)
  1. GILENYA [Suspect]
     Indication: MULTIPLE SCLEROSIS
     Route: 048
     Dates: start: 20120615
  2. PAXIL (PAROXETINE HYDROCHLORIDE) [Concomitant]
  3. AMBIEN (ZOLPIDEM TARTRATE) [Concomitant]
  4. METHENAMINE HIPPURATE (METHENAMINE HIPPURATE) [Concomitant]
  5. VESICARE (SOLIFENACIN) [Concomitant]
  6. WELLBUTRIN (BUPROPION HYDROCHLORIDE) [Concomitant]
  7. BACLOFEN (BACLOFEN) [Concomitant]
  8. NEURONTIN (GABAPENTIN) [Concomitant]
  9. TYLENOL (PARACETAMOL) [Concomitant]

REACTIONS (5)
  - Feeling hot [None]
  - Malaise [None]
  - Anxiety [None]
  - Flushing [None]
  - Headache [None]
